FAERS Safety Report 9585351 (Version 1)
Quarter: 2013Q4

REPORT INFORMATION
  Report Type: Spontaneous
  Country: US (occurrence: US)
  Receive Date: 20131002
  Receipt Date: 20131002
  Transmission Date: 20140711
  Serious: No
  Sender: FDA-Public Use
  Company Number: US-AMGEN-USASP2013063770

PATIENT
  Age: 53 Year
  Sex: Male
  Weight: 99.77 kg

DRUGS (6)
  1. ENBREL [Suspect]
     Indication: PRODUCT USED FOR UNKNOWN INDICATION
     Dosage: 50 MG, QWK
     Route: 058
  2. METOPROLOL [Concomitant]
     Dosage: 25 MG, ER
  3. HYDROCHLOROTH [Concomitant]
     Dosage: 25 MG, UNK
  4. LISINOPRIL [Concomitant]
     Dosage: 10 MG, UNK
  5. MELOXICAM [Concomitant]
     Dosage: 7.5 MG, UNK
  6. FISH OIL [Concomitant]
     Dosage: UNK

REACTIONS (1)
  - Rash [Unknown]
